FAERS Safety Report 7624537-7 (Version None)
Quarter: 2011Q3

REPORT INFORMATION
  Report Type: 
  Country: None (occurrence: None)
  Receive Date: 20110720
  Receipt Date: 20110708
  Transmission Date: 20111222
  Serious: Yes (Other)
  Sender: FDA-Public Use
  Company Number: JP-PFIZER INC-2011114656

PATIENT
  Age: 46 Year
  Sex: Female

DRUGS (5)
  1. RIMATIL [Concomitant]
     Dosage: UNK
  2. MUCOSTA [Concomitant]
     Dosage: UNK
  3. AZULFIDINE [Suspect]
     Indication: RHEUMATOID ARTHRITIS
     Dosage: 500 MG, 1X/DAY
     Dates: start: 20110330, end: 20110501
  4. CELECOXIB [Concomitant]
     Dosage: UNK
  5. PREDNISOLONE [Suspect]
     Dosage: UNK

REACTIONS (1)
  - OESOPHAGEAL CANDIDIASIS [None]
